FAERS Safety Report 23089447 (Version 1)
Quarter: 2023Q4

REPORT INFORMATION
  Report Type: Report from Study
  Country: US (occurrence: US)
  Receive Date: 20231020
  Receipt Date: 20231020
  Transmission Date: 20240110
  Serious: Yes (Other)
  Sender: FDA-Public Use
  Company Number: US-drreddys-CLI/USA/23/0179874

PATIENT
  Age: 29 Year
  Sex: Female

DRUGS (2)
  1. ACCUTANE [Suspect]
     Active Substance: ISOTRETINOIN
     Indication: Acne
     Dates: end: 202211
  2. ACCUTANE [Suspect]
     Active Substance: ISOTRETINOIN
     Dates: start: 20230918, end: 20230922

REACTIONS (3)
  - Exposure during pregnancy [Unknown]
  - Acne [Unknown]
  - Treatment noncompliance [Unknown]

NARRATIVE: CASE EVENT DATE: 20221101
